FAERS Safety Report 7621046-6 (Version None)
Quarter: 2011Q3

REPORT INFORMATION
  Report Type: 
  Country: None (occurrence: None)
  Receive Date: 20110719
  Receipt Date: 20100922
  Transmission Date: 20111222
  Serious: No
  Sender: FDA-Public Use
  Company Number: US-KINGPHARMUSA00001-K201001195

PATIENT
  Sex: Female
  Weight: 108.84 kg

DRUGS (2)
  1. LEVOXYL [Suspect]
     Dosage: 25 MCG, QD
     Route: 048
     Dates: start: 20100101, end: 20100101
  2. LEVOXYL [Suspect]
     Indication: HYPOTHYROIDISM
     Dosage: 37.5 MCG, QD
     Route: 048
     Dates: start: 20100501

REACTIONS (1)
  - HOT FLUSH [None]
